FAERS Safety Report 10401334 (Version 11)
Quarter: 2015Q4

REPORT INFORMATION
  Report Type: Report from Study
  Country: US (occurrence: US)
  Receive Date: 20140822
  Receipt Date: 20151209
  Transmission Date: 20160304
  Serious: Yes (Hospitalization, Congenital Anomaly)
  Sender: FDA-Public Use
  Company Number: US-ROCHE-1438479

PATIENT
  Age: 0 Day
  Sex: Male
  Weight: 3.69 kg

DRUGS (7)
  1. OMALIZUMAB [Suspect]
     Active Substance: OMALIZUMAB
     Route: 063
  2. OMALIZUMAB [Suspect]
     Active Substance: OMALIZUMAB
     Indication: PRODUCT USED FOR UNKNOWN INDICATION
     Route: 064
  3. XYLOCAINE [Concomitant]
     Active Substance: LIDOCAINE HYDROCHLORIDE
     Indication: CIRCUMCISION
     Route: 065
     Dates: start: 20140620, end: 20140620
  4. TYLENOL [Concomitant]
     Active Substance: ACETAMINOPHEN
     Indication: PROCEDURAL PAIN
     Route: 065
     Dates: start: 20150520, end: 201505
  5. TYLENOL [Concomitant]
     Active Substance: ACETAMINOPHEN
     Route: 048
     Dates: start: 20140620, end: 20140623
  6. GENTAMICIN SULFATE. [Concomitant]
     Active Substance: GENTAMICIN SULFATE
     Route: 065
     Dates: start: 20140618, end: 20140709
  7. AMPICILLIN [Concomitant]
     Active Substance: AMPICILLIN
     Route: 042
     Dates: start: 20140618, end: 20140618

REACTIONS (10)
  - Hydrocele [Recovered/Resolved]
  - Ear infection [Recovered/Resolved]
  - Large for dates baby [Recovered/Resolved]
  - Respiratory syncytial virus infection [Recovered/Resolved]
  - Croup infectious [Recovered/Resolved]
  - Foetal exposure during pregnancy [Unknown]
  - Exposure during breast feeding [Unknown]
  - Eczema [Unknown]
  - Neonatal hypoxia [Recovered/Resolved]
  - Cough [Recovered/Resolved]

NARRATIVE: CASE EVENT DATE: 20140617
